FAERS Safety Report 10948036 (Version 1)
Quarter: 2015Q1

REPORT INFORMATION
  Report Type: Spontaneous
  Country: US (occurrence: US)
  Receive Date: 20150324
  Receipt Date: 20150324
  Transmission Date: 20150721
  Serious: Yes (Death)
  Sender: FDA-Public Use
  Company Number: US-CIPLA LTD.-2015US02239

PATIENT

DRUGS (6)
  1. HYDROCODONE [Suspect]
     Active Substance: HYDROCODONE
  2. MORPHINE [Suspect]
     Active Substance: MORPHINE
  3. CITALOPRAM [Suspect]
     Active Substance: CITALOPRAM HYDROBROMIDE
  4. CLONAZEPAM. [Suspect]
     Active Substance: CLONAZEPAM
  5. ACETAMINOPHEN. [Suspect]
     Active Substance: ACETAMINOPHEN
  6. OXYCODONE [Suspect]
     Active Substance: OXYCODONE

REACTIONS (1)
  - Drug abuse [Fatal]
